FAERS Safety Report 10089896 (Version 1)
Quarter: 2014Q2

REPORT INFORMATION
  Report Type: Spontaneous
  Country: US (occurrence: US)
  Receive Date: 20140421
  Receipt Date: 20140421
  Transmission Date: 20141212
  Serious: No
  Sender: FDA-Public Use
  Company Number: US-ABBVIE-13P-163-1096688-00

PATIENT
  Age: 9 Year
  Sex: Female
  Weight: 36 kg

DRUGS (1)
  1. LUPRON DEPOT-PED (3 MONTH) [Suspect]
     Indication: PRECOCIOUS PUBERTY
     Dates: start: 20121003, end: 20130322

REACTIONS (8)
  - Injection site fibrosis [Unknown]
  - Injection site pain [Unknown]
  - Injection site pustule [Unknown]
  - Injection site induration [Unknown]
  - Injection site vesicles [Unknown]
  - Blood gonadotrophin abnormal [Unknown]
  - Oestradiol abnormal [Unknown]
  - Injection site haematoma [Recovered/Resolved]
